FAERS Safety Report 11890071 (Version 1)
Quarter: 2016Q1

REPORT INFORMATION
  Report Type: Spontaneous
  Country: US (occurrence: US)
  Receive Date: 20160105
  Receipt Date: 20160105
  Transmission Date: 20160526
  Serious: No
  Sender: FDA-Public Use
  Company Number: US-SA-2015SA069227

PATIENT
  Age: 67 Year
  Sex: Female
  Weight: 59 kg

DRUGS (1)
  1. MOZOBIL [Suspect]
     Active Substance: PLERIXAFOR
     Indication: B-CELL LYMPHOMA
     Route: 065
     Dates: start: 20150509, end: 20150509

REACTIONS (1)
  - Blood stem cell transplant failure [Unknown]

NARRATIVE: CASE EVENT DATE: 201505
